FAERS Safety Report 14176992 (Version 1)
Quarter: 2017Q4

REPORT INFORMATION
  Report Type: Spontaneous
  Country: US (occurrence: US)
  Receive Date: 20171110
  Receipt Date: 20171110
  Transmission Date: 20180321
  Serious: Yes (Other)
  Sender: FDA-Public Use
  Company Number: US-ASTRAZENECA-2017SF12187

PATIENT
  Age: 615 Month
  Sex: Male
  Weight: 92.1 kg

DRUGS (14)
  1. RITALIN [Concomitant]
     Active Substance: METHYLPHENIDATE HYDROCHLORIDE
     Indication: SOMNOLENCE
     Dosage: TWICE A DAY
  2. DULOXETINE. [Concomitant]
     Active Substance: DULOXETINE
     Dosage: DOSAGE MAY BE 60 MG
  3. LETROZOLE. [Concomitant]
     Active Substance: LETROZOLE
     Indication: BREAST CANCER METASTATIC
  4. LOVENOX [Concomitant]
     Active Substance: ENOXAPARIN SODIUM
  5. METHADONE [Concomitant]
     Active Substance: METHADONE HYDROCHLORIDE
     Indication: NEUROPATHY PERIPHERAL
     Dosage: 7 .5 MG TABLET IN THE MORNING AND 5 MG AT NIGHT BY MOUTH
     Route: 048
  6. AMBIEN [Concomitant]
     Active Substance: ZOLPIDEM TARTRATE
     Indication: SLEEP DISORDER
     Dosage: LOMG TABLET ONCE AT NIGHT AS NEEDED BY MOUTH
     Route: 048
  7. WELLBUTRIN [Concomitant]
     Active Substance: BUPROPION HYDROCHLORIDE
     Indication: DEPRESSION
     Dosage: 300 MG
  8. WELLBUTRIN [Concomitant]
     Active Substance: BUPROPION HYDROCHLORIDE
     Indication: DEPRESSION
     Dosage: 150 MG
  9. METFORMIN [Concomitant]
     Active Substance: METFORMIN HYDROCHLORIDE
  10. ELIQUIS [Concomitant]
     Active Substance: APIXABAN
     Indication: ANTICOAGULANT THERAPY
  11. TAMOXIFEN [Suspect]
     Active Substance: TAMOXIFEN
     Route: 048
  12. OMEPRAZOLE. [Suspect]
     Active Substance: OMEPRAZOLE
     Indication: REFLUX GASTRITIS
     Route: 048
  13. IBRANCE [Suspect]
     Active Substance: PALBOCICLIB
     Indication: BREAST CANCER METASTATIC
     Dosage: 125 MG CAPSULE ONCE A NIGHT FOR 21 NIGHTS AND THEN 7 DAYS OFF
     Route: 048
  14. HYDROCODONE [Concomitant]
     Active Substance: HYDROCODONE
     Indication: PAIN IN EXTREMITY
     Dosage: 10 MG ONE TO FOUR TIMES A DAY DEPENDING ON THE NEED

REACTIONS (4)
  - Road traffic accident [Unknown]
  - Blood glucose increased [Unknown]
  - Drug dose omission [Not Recovered/Not Resolved]
  - Malignant neoplasm progression [Unknown]

NARRATIVE: CASE EVENT DATE: 201709
